FAERS Safety Report 24387458 (Version 4)
Quarter: 2025Q1

REPORT INFORMATION
  Report Type: Spontaneous
  Country: US (occurrence: US)
  Receive Date: 20241002
  Receipt Date: 20250310
  Transmission Date: 20250409
  Serious: No
  Sender: PFIZER
  Company Number: US-PFIZER INC-PV202400127610

PATIENT
  Age: 60 Year
  Sex: Female
  Weight: 61.3 kg

DRUGS (9)
  1. IBRANCE [Suspect]
     Active Substance: PALBOCICLIB
     Indication: Breast cancer metastatic
     Dates: start: 20220510
  2. IBRANCE [Suspect]
     Active Substance: PALBOCICLIB
     Dates: start: 20220804
  3. IBRANCE [Suspect]
     Active Substance: PALBOCICLIB
     Dates: start: 20230928
  4. IBRANCE [Suspect]
     Active Substance: PALBOCICLIB
     Route: 048
  5. FASLODEX [Concomitant]
     Active Substance: FULVESTRANT
     Indication: Breast cancer metastatic
     Dates: start: 20220510
  6. FASLODEX [Concomitant]
     Active Substance: FULVESTRANT
     Dates: start: 20220804, end: 20230928
  7. PROLIA [Concomitant]
     Active Substance: DENOSUMAB
     Indication: Breast cancer metastatic
     Dates: start: 20220804
  8. PROLIA [Concomitant]
     Active Substance: DENOSUMAB
     Dates: start: 20230928
  9. LETROZOLE [Concomitant]
     Active Substance: LETROZOLE
     Indication: Breast cancer metastatic
     Dates: start: 20230928

REACTIONS (1)
  - Middle insomnia [Unknown]
